FAERS Safety Report 23599339 (Version 1)
Quarter: 2024Q1

REPORT INFORMATION
  Report Type: Spontaneous
  Country: US (occurrence: US)
  Receive Date: 20240306
  Receipt Date: 20240306
  Transmission Date: 20240410
  Serious: No
  Sender: FDA-Public Use
  Company Number: US-PTC THERAPEUTICS INC.-US-2023PTC001054

PATIENT
  Sex: Male

DRUGS (2)
  1. EMFLAZA [Suspect]
     Active Substance: DEFLAZACORT
     Indication: Duchenne muscular dystrophy
     Dosage: 18 MG, QD
     Route: 048
  2. EMFLAZA [Suspect]
     Active Substance: DEFLAZACORT
     Dosage: 15 MG, QD
     Route: 048

REACTIONS (3)
  - Aggression [Not Recovered/Not Resolved]
  - Anger [Not Recovered/Not Resolved]
  - Substance-induced psychotic disorder [Not Recovered/Not Resolved]
